FAERS Safety Report 4313291-2 (Version None)
Quarter: 2004Q1

REPORT INFORMATION
  Report Type: 
  Country: None (occurrence: None)
  Receive Date: 20040304
  Receipt Date: 20040220
  Transmission Date: 20041129
  Serious: Yes (Hospitalization)
  Sender: FDA-Public Use
  Company Number: 03P-163-0245195-00

PATIENT
  Age: 41 Year
  Sex: Female

DRUGS (6)
  1. KALETRA [Suspect]
     Indication: HIV INFECTION
     Dosage: 400 MG, PER ORAL
     Route: 048
     Dates: start: 20030616, end: 20031118
  2. NORVIR [Suspect]
     Indication: HIV INFECTION
     Dosage: 100 MG, 1 IN 1 D, PER ORAL
     Route: 048
     Dates: start: 20030616, end: 20031118
  3. TENOFOVIR [Suspect]
     Indication: HIV INFECTION
     Dosage: 300 MG, PER ORAL
     Route: 048
     Dates: start: 20030616, end: 20031118
  4. TIPRANAVIR [Suspect]
     Indication: HIV INFECTION
  5. DELAVIRDINE [Concomitant]
  6. LAMIVUDINE [Concomitant]

REACTIONS (8)
  - ANAEMIA [None]
  - ASTHENIA [None]
  - DEHYDRATION [None]
  - FAILURE TO THRIVE [None]
  - FATIGUE [None]
  - MALAISE [None]
  - NAUSEA [None]
  - RENAL FAILURE [None]
